FAERS Safety Report 9919938 (Version 2)
Quarter: 2014Q1

REPORT INFORMATION
  Report Type: Spontaneous
  Country: JP (occurrence: JP)
  Receive Date: 20140224
  Receipt Date: 20140224
  Transmission Date: 20141002
  Serious: Yes (Life-Threatening, Other)
  Sender: FDA-Public Use
  Company Number: JP-WATSON-2014-01873

PATIENT
  Age: 68 Year
  Sex: Female
  Weight: 34 kg

DRUGS (15)
  1. FENTANYL (UNKNOWN) [Suspect]
     Indication: ANAESTHESIA
     Dosage: 12?G/HR- AFTER COMPLETION OF THE OPERATION
     Route: 008
  2. FENTANYL (UNKNOWN) [Suspect]
     Dosage: 18?G/HR
     Route: 008
  3. FENTANYL (UNKNOWN) [Suspect]
     Dosage: 0.1 MG
     Route: 008
  4. FENTANYL (UNKNOWN) [Suspect]
     Dosage: 0.3MG INJECTED INTERMITTENTLY
     Route: 042
  5. LIDOCAINE                          /00033402/ [Concomitant]
     Indication: ANAESTHESIA
     Dosage: 1% 5ML
     Route: 008
  6. LIDOCAINE                          /00033402/ [Concomitant]
     Dosage: 2 ML 2%
     Route: 008
  7. OXYGEN [Concomitant]
     Indication: ANAESTHESIA
     Dosage: 6L/MIN
     Route: 065
  8. AMINOPHYLLIN                       /00003701/ [Concomitant]
     Indication: ASTHMA PROPHYLAXIS
     Dosage: 250 MG
     Route: 042
  9. SEVOFLURANE [Concomitant]
     Indication: INDUCTION AND MAINTENANCE OF ANAESTHESIA
     Dosage: 1.5%
     Route: 065
  10. SEVOFLURANE [Concomitant]
     Dosage: 1%-5%
     Route: 065
  11. REMIFENTANIL [Concomitant]
     Indication: INDUCTION AND MAINTENANCE OF ANAESTHESIA
     Dosage: 0.20 MCG/KG/MIN
     Route: 008
  12. REMIFENTANIL [Concomitant]
     Dosage: 0.25 MCG/KG/MIN
     Route: 008
  13. ROCURONIUM                         /01245702/ [Concomitant]
     Indication: INDUCTION OF ANAESTHESIA
     Dosage: 30 MG
     Route: 065
  14. ROPIVACAINE [Concomitant]
     Indication: ANAESTHESIA
     Dosage: 0.2% 4 ML/HR
     Route: 065
  15. ROPIVACAINE [Concomitant]
     Dosage: 0.2% 6 ML/HR
     Route: 065

REACTIONS (4)
  - Postoperative respiratory failure [Recovered/Resolved]
  - Apnoea [Recovered/Resolved]
  - Depressed level of consciousness [Recovered/Resolved]
  - Medication error [Recovered/Resolved]
